FAERS Safety Report 5736124-6 (Version None)
Quarter: 2008Q2

REPORT INFORMATION
  Report Type: 
  Country: None (occurrence: None)
  Receive Date: 20080509
  Receipt Date: 20080509
  Transmission Date: 20081010
  Serious: Yes (Other)
  Sender: FDA-Public Use
  Company Number: None

PATIENT
  Sex: Female
  Weight: 69.8539 kg

DRUGS (1)
  1. MAGNESIUM CITRATE    1.745 G PER FL OZ       CUMBERLAND SWAN USP [Suspect]
     Indication: GASTROINTESTINAL DISORDER
     Dosage: 10 FL OZ   ONCE   PO
     Route: 048
     Dates: start: 20080503, end: 20080503

REACTIONS (2)
  - FALL [None]
  - LOSS OF CONSCIOUSNESS [None]
